FAERS Safety Report 4290330-9 (Version None)
Quarter: 2004Q1

REPORT INFORMATION
  Report Type: 
  Country: None (occurrence: None)
  Receive Date: 20040209
  Receipt Date: 20040128
  Transmission Date: 20041129
  Serious: Yes (Other)
  Sender: FDA-Public Use
  Company Number: NSADSS2003022878

PATIENT
  Age: 42 Year
  Sex: Male
  Weight: 83.9154 kg

DRUGS (4)
  1. REMICADE [Suspect]
     Dosage: 1 IN 1 AS NECESSARY, INTRAVENOUS DRIP
     Route: 041
     Dates: start: 20010604, end: 20010604
  2. ASACOL [Concomitant]
  3. FLAGYL [Concomitant]
  4. PREDNISONE [Concomitant]

REACTIONS (2)
  - HERPES VIRUS INFECTION [None]
  - SERUM SICKNESS [None]
